FAERS Safety Report 12281532 (Version 1)
Quarter: 2016Q2

REPORT INFORMATION
  Report Type: Spontaneous
  Country: US (occurrence: None)
  Receive Date: 20160418
  Receipt Date: 20160418
  Transmission Date: 20160815
  Serious: Yes (Hospitalization)
  Sender: FDA-Public Use
  Company Number: None

PATIENT
  Age: 27 Year
  Sex: Female
  Weight: 49.5 kg

DRUGS (7)
  1. DEPOCYT [Suspect]
     Active Substance: CYTARABINE
     Indication: B-CELL LYMPHOMA
     Dosage: DAY 1 + DAY 15 OF COURSE 2A
     Route: 037
     Dates: start: 20160317
  2. DAUNORUBICIN [Suspect]
     Active Substance: DAUNORUBICIN
     Indication: B-CELL LYMPHOMA
     Dosage: DAYS 1-3 OF COURSE 2A
     Route: 042
     Dates: start: 20160317, end: 20160319
  3. PEG-L-ASPARAGINASE [Suspect]
     Active Substance: PEGASPARGASE
     Indication: B-CELL LYMPHOMA
     Dosage: 2960 UNITS DAY 16 OF COURSE 2A
     Route: 042
     Dates: start: 20160405
  4. VINCRISTINE [Suspect]
     Active Substance: VINCRISTINE
     Indication: B-CELL LYMPHOMA
     Dosage: DAY 1, 8, 15 AND 22 OF COURSE 2A
     Route: 042
     Dates: start: 20160317
  5. CYCLOPHOSPHAMIDE. [Suspect]
     Active Substance: CYCLOPHOSPHAMIDE
     Indication: B-CELL LYMPHOMA
     Dosage: DAY 1 + DAY 15 OF COURSE 2A
     Route: 042
     Dates: start: 20160317
  6. RITUXIMAB [Suspect]
     Active Substance: RITUXIMAB
     Indication: B-CELL LYMPHOMA
     Dosage: DAY 1 + DAY 15 OF COURSE 2A
     Route: 042
     Dates: start: 20160317
  7. PREDNISONE. [Suspect]
     Active Substance: PREDNISONE
     Indication: B-CELL LYMPHOMA
     Dosage: DAYS 1-28 OF COURSE 2A
     Route: 048
     Dates: start: 20160317

REACTIONS (5)
  - Febrile neutropenia [None]
  - Anaemia [None]
  - Diarrhoea [None]
  - Thrombocytopenia [None]
  - Abdominal pain [None]

NARRATIVE: CASE EVENT DATE: 20160414
